FAERS Safety Report 11097102 (Version 1)
Quarter: 2015Q2

REPORT INFORMATION
  Report Type: Spontaneous
  Country: US (occurrence: US)
  Receive Date: 20150507
  Receipt Date: 20150507
  Transmission Date: 20150821
  Serious: Yes (Hospitalization)
  Sender: FDA-Public Use
  Company Number: US-JNJFOC-20150501137

PATIENT
  Age: 27 Year
  Sex: Female
  Weight: 113.4 kg

DRUGS (1)
  1. XARELTO [Suspect]
     Active Substance: RIVAROXABAN
     Indication: DEEP VEIN THROMBOSIS
     Route: 048
     Dates: start: 201504, end: 2015

REACTIONS (2)
  - Pulmonary embolism [Unknown]
  - Pleurisy [Unknown]

NARRATIVE: CASE EVENT DATE: 2015
